FAERS Safety Report 22315510 (Version 2)
Quarter: 2023Q4

REPORT INFORMATION
  Report Type: Report from Study
  Country: CZ (occurrence: CZ)
  Receive Date: 20230512
  Receipt Date: 20231011
  Transmission Date: 20240110
  Serious: Yes (Hospitalization)
  Sender: FDA-Public Use
  Company Number: CZ-INCYTE CORPORATION-2022IN007722

PATIENT
  Age: 69 Year
  Sex: Male
  Weight: 85 kg

DRUGS (6)
  1. TAFASITAMAB [Suspect]
     Active Substance: TAFASITAMAB
     Indication: Follicular lymphoma
     Dosage: 12 MILLIGRAM/KILOGRAM (1020 MG) (DAYS 1, 8, 15, 22 OF CYCLES 1 TO 3 THEN DAYS 1 AND 15 OF CYCLES 4 T
     Route: 042
     Dates: start: 20220802, end: 20220809
  2. TAFASITAMAB [Suspect]
     Active Substance: TAFASITAMAB
     Dosage: 12 MILLIGRAM/KILOGRAM (1020 MG) (DAYS 1, 8, 15, 22 OF CYCLES 1 TO 3 THEN DAYS 1 AND 15 OF CYCLES 4 T
     Route: 042
     Dates: start: 20221018
  3. RITUXIMAB [Suspect]
     Active Substance: RITUXIMAB
     Indication: Lymphoma
     Dosage: 375 MILLIGRAM/SQ. METER (787.5 MG) (DAYS 1, 8, 15, 22 OF CYCLE 1 THEN DAY 1 OF CYCLES 2 TO 5)
     Route: 042
     Dates: start: 20220802, end: 20220809
  4. RITUXIMAB [Suspect]
     Active Substance: RITUXIMAB
     Dosage: 375 MILLIGRAM/SQ. METER
     Route: 042
     Dates: start: 20221025
  5. LENALIDOMIDE [Suspect]
     Active Substance: LENALIDOMIDE
     Indication: Follicular lymphoma
     Dosage: 20 MILLIGRAM DAILY (DAYS 1 TO 21 OF CYCLES 1 TO 12)
     Route: 048
     Dates: start: 20220802, end: 20220807
  6. LENALIDOMIDE [Suspect]
     Active Substance: LENALIDOMIDE
     Dosage: 15 UNK
     Route: 048
     Dates: start: 20221025

REACTIONS (1)
  - Infection [Not Recovered/Not Resolved]

NARRATIVE: CASE EVENT DATE: 20220809
